FAERS Safety Report 25101139 (Version 1)
Quarter: 2025Q1

REPORT INFORMATION
  Report Type: Spontaneous
  Country: US (occurrence: US)
  Receive Date: 20250320
  Receipt Date: 20250320
  Transmission Date: 20250409
  Serious: No
  Sender: CIPLA
  Company Number: US-CIPLA LTD.-2024US10651

PATIENT

DRUGS (3)
  1. TESTOSTERONE [Suspect]
     Active Substance: TESTOSTERONE
     Indication: Product used for unknown indication
     Route: 065
     Dates: start: 2014
  2. TESTOSTERONE [Suspect]
     Active Substance: TESTOSTERONE
     Route: 030
     Dates: start: 2024
  3. TESTOSTERONE [Suspect]
     Active Substance: TESTOSTERONE
     Route: 030
     Dates: start: 2024, end: 2024

REACTIONS (2)
  - Pain in extremity [Recovered/Resolved]
  - Inflammation [Recovered/Resolved]

NARRATIVE: CASE EVENT DATE: 20240101
